FAERS Safety Report 7612247-1 (Version None)
Quarter: 2011Q3

REPORT INFORMATION
  Report Type: 
  Country: None (occurrence: None)
  Receive Date: 20110715
  Receipt Date: 20110701
  Transmission Date: 20111222
  Serious: Yes (Hospitalization, Other)
  Sender: FDA-Public Use
  Company Number: PHHY2009JP48659

PATIENT
  Sex: Female
  Weight: 98 kg

DRUGS (37)
  1. VALSARTAN [Suspect]
     Dosage: 160 MG PER DAY
     Route: 048
     Dates: start: 20081126, end: 20100801
  2. OLOPATADINE HCL [Concomitant]
     Dosage: 5 MG, UNK
     Route: 048
     Dates: start: 20090304, end: 20090501
  3. LASIX [Concomitant]
     Dosage: 2 DF IN THE MORNING AND AT 2 DF IN THE NOON DAILY
     Dates: start: 20091202
  4. VALSARTAN [Suspect]
     Dosage: 80 MG PER DAY
     Route: 048
     Dates: start: 20081001, end: 20081028
  5. CANDESARTAN CILEXETIL [Concomitant]
     Indication: HYPERTENSION
     Dosage: 12 MG
     Route: 048
     Dates: start: 20080806, end: 20080930
  6. BISOPROLOL FUMARATE [Concomitant]
     Indication: HYPERTENSION
     Dosage: 2.5 MG
     Route: 048
     Dates: start: 20090107
  7. LEVEMIR [Concomitant]
     Dosage: 32 IU, UNK
     Route: 058
     Dates: end: 20090303
  8. ALLOPURINOL [Concomitant]
     Dosage: 0.5 DF, UNK
     Route: 048
  9. CARVEDILOL [Concomitant]
     Indication: HYPERTENSION
     Dosage: UNK
     Route: 048
     Dates: start: 20100611
  10. LANTUS [Suspect]
     Dosage: 24 IU DAILY
     Route: 058
     Dates: start: 20090617, end: 20090908
  11. DILTIAZEM HCL [Concomitant]
     Dosage: 30 MG, UNK
     Route: 048
  12. LANTUS [Suspect]
     Dosage: 22 IU DAILY
     Route: 058
     Dates: start: 20090909
  13. DIART [Concomitant]
     Indication: HYPERTENSION
     Dosage: 30 MG
     Route: 048
     Dates: start: 20080806
  14. TICLOPIDINE HCL [Concomitant]
     Dosage: 200 MG
     Route: 048
     Dates: start: 20080806
  15. ASPIRIN [Concomitant]
     Dosage: 100 MG, UNK
     Route: 048
     Dates: start: 20080806
  16. BENECID [Concomitant]
     Dosage: 500 MG, UNK
     Route: 048
     Dates: start: 20080806, end: 20091013
  17. ALLEGRA [Concomitant]
  18. DIART [Concomitant]
     Dosage: 30 MG, UNK
     Route: 048
  19. INDAPAMIDE [Concomitant]
     Indication: HYPERTENSION
     Dosage: 1 MG
     Route: 048
     Dates: start: 20090204, end: 20090812
  20. NOVORAPID [Concomitant]
     Dosage: 30 IU, UNK
     Route: 058
     Dates: start: 20080806
  21. NOVORAPID [Concomitant]
     Dosage: 40 IU, UNK
     Route: 058
  22. LEVEMIR [Concomitant]
     Dosage: 22 IU, UNK
     Route: 058
     Dates: start: 20080806
  23. FRANDOL [Concomitant]
     Route: 062
  24. LANTUS [Suspect]
     Dosage: 32 IU DAILY
     Route: 058
     Dates: start: 20090304, end: 20090616
  25. DOXAZOSIN MESYLATE [Concomitant]
     Indication: HYPERTENSION
     Dosage: 4 MG
     Route: 048
     Dates: start: 20080806
  26. FAMOTIDINE [Concomitant]
     Dosage: 20 MG, UNK
     Route: 048
     Dates: start: 20080806
  27. NORVASC [Concomitant]
     Indication: HYPERTENSION
     Dosage: 10 MG
     Route: 048
     Dates: start: 20080806
  28. DIART [Concomitant]
     Dosage: 60 MG, UNK
     Route: 048
  29. NOVORAPID [Concomitant]
     Dosage: 36 IU, UNK
     Route: 058
  30. LEVEMIR [Concomitant]
     Dosage: 26 IU, UNK
     Route: 058
  31. LIPITOR [Concomitant]
     Dosage: 20 MG, UNK
     Route: 048
     Dates: start: 20080806
  32. ATELEC [Concomitant]
     Dosage: UNK
     Dates: start: 20100303
  33. VALSARTAN [Suspect]
     Dosage: 120 MG PER DAY
     Route: 048
     Dates: start: 20081029
  34. ADALAT CC [Concomitant]
     Indication: HYPERTENSION
     Dosage: 20 MG
     Route: 048
     Dates: start: 20090304, end: 20090401
  35. NOVORAPID [Concomitant]
     Dosage: 46 IU, UNK
     Route: 058
  36. LIPITOR [Concomitant]
     Dosage: 5 MG, UNK
     Route: 048
  37. ZETIA [Concomitant]
     Dosage: 10 MG, UNK
     Route: 048
     Dates: start: 20080806

REACTIONS (13)
  - BLOOD PRESSURE SYSTOLIC INCREASED [None]
  - COUGH [None]
  - GLYCOSYLATED HAEMOGLOBIN INCREASED [None]
  - WEIGHT INCREASED [None]
  - ANGIOMYOLIPOMA [None]
  - SWELLING [None]
  - DIABETIC NEPHROPATHY [None]
  - NEPHROGENIC ANAEMIA [None]
  - BLOOD PRESSURE DIASTOLIC DECREASED [None]
  - NEPHROTIC SYNDROME [None]
  - OEDEMA PERIPHERAL [None]
  - URTICARIA [None]
  - HYPOAESTHESIA [None]
